FAERS Safety Report 7931498-X (Version None)
Quarter: 2011Q4

REPORT INFORMATION
  Report Type: 
  Country: None (occurrence: None)
  Receive Date: 20111121
  Receipt Date: 20111121
  Transmission Date: 20120403
  Serious: Yes (Life-Threatening, Hospitalization, Disabling, Other)
  Sender: FDA-Public Use
  Company Number: None

PATIENT
  Age: 72 Year
  Sex: Male
  Weight: 97.522 kg

DRUGS (1)
  1. PROHANCE [Suspect]
     Indication: ABDOMINAL PAIN UPPER
     Route: 042
     Dates: start: 20111114, end: 20111114

REACTIONS (12)
  - TOXICITY TO VARIOUS AGENTS [None]
  - DYSKINESIA [None]
  - DRY THROAT [None]
  - URINARY INCONTINENCE [None]
  - CONTRAST MEDIA ALLERGY [None]
  - TREMOR [None]
  - MUSCLE SPASMS [None]
  - RESTLESSNESS [None]
  - HALLUCINATION [None]
  - NO THERAPEUTIC RESPONSE [None]
  - ASTHENIA [None]
  - NERVOUSNESS [None]
